FAERS Safety Report 8987539 (Version 1)
Quarter: 2012Q4

REPORT INFORMATION
  Report Type: 
  Country: US (occurrence: US)
  Receive Date: 20121227
  Receipt Date: 20121227
  Transmission Date: 20130627
  Serious: Yes (Other)
  Sender: FDA-Public Use
  Company Number: PHEH2012US025292

PATIENT
  Sex: Male

DRUGS (3)
  1. EXELON PATCH [Suspect]
     Indication: DEMENTIA
     Dosage: 9.5 mg, Daily
     Route: 062
  2. EXELON PATCH [Suspect]
     Dosage: 13.5 mg, Daily
     Route: 062
  3. NAMENDA [Concomitant]

REACTIONS (3)
  - Loss of consciousness [Unknown]
  - Vomiting [Unknown]
  - Incorrect dose administered [Unknown]
